FAERS Safety Report 4550842-7 (Version None)
Quarter: 2004Q4

REPORT INFORMATION
  Report Type: 
  Country: None (occurrence: None)
  Receive Date: 20041217
  Receipt Date: 20040913
  Transmission Date: 20050328
  Serious: No
  Sender: FDA-Public Use
  Company Number: 2004-BP-08229BP

PATIENT
  Age: 57 Year
  Sex: Female

DRUGS (12)
  1. SPIRIVA [Suspect]
     Indication: CHRONIC OBSTRUCTIVE AIRWAYS DISEASE
     Dosage: 18 MCG (18 MCG), IH
     Route: 055
     Dates: start: 20040819, end: 20040902
  2. SPIRIVA [Suspect]
  3. SPIRIVA [Suspect]
  4. CATAPRES [Concomitant]
  5. LOPRESSOR [Concomitant]
  6. PAMELOR [Concomitant]
  7. XANAX [Concomitant]
  8. NEFAM (NEFOPAM HYDROCHLORIDE) [Concomitant]
  9. ALBUTEROL [Concomitant]
  10. LIPITOR [Concomitant]
  11. DARVOCET [Concomitant]
  12. VISTARIL [Concomitant]

REACTIONS (1)
  - RASH [None]
